FAERS Safety Report 5861124-5 (Version None)
Quarter: 2008Q3

REPORT INFORMATION
  Report Type: 
  Country: None (occurrence: None)
  Receive Date: 20080827
  Receipt Date: 20080227
  Transmission Date: 20090109
  Serious: No
  Sender: FDA-Public Use
  Company Number: US-ABBOTT-08P-163-0439992-00

PATIENT
  Sex: Female
  Weight: 125 kg

DRUGS (11)
  1. COATED PDS [Suspect]
     Indication: BLOOD CHOLESTEROL INCREASED
     Route: 048
     Dates: start: 20080222
  2. METFORMIN HCL [Concomitant]
     Indication: DIABETES MELLITUS
     Route: 048
  3. BYETTA [Concomitant]
     Indication: DIABETES MELLITUS
     Route: 058
  4. WARFARIN SODIUM [Concomitant]
     Indication: PULMONARY EMBOLISM
     Route: 048
  5. CARVEDILOL [Concomitant]
     Indication: PULMONARY HYPERTENSION
     Route: 048
  6. LOTREL [Concomitant]
     Indication: PULMONARY HYPERTENSION
     Route: 048
  7. LEVOTHYROXINE SODIUM [Concomitant]
     Indication: THYROIDECTOMY
     Route: 048
  8. BENAZEPRIL HYDROCHLORIDE [Concomitant]
     Indication: PULMONARY HYPERTENSION
     Route: 048
  9. ROSUVASTATIN [Concomitant]
     Indication: BLOOD CHOLESTEROL INCREASED
     Route: 048
  10. ALPRAZOLAM [Concomitant]
     Indication: ANXIETY
     Route: 048
  11. DIPHENHYDRAMINE HYDROCHLORIDE [Concomitant]
     Indication: SLEEP DISORDER THERAPY
     Route: 048

REACTIONS (3)
  - BURNING SENSATION [None]
  - FLUSHING [None]
  - SWELLING [None]
